FAERS Safety Report 6983766-6 (Version None)
Quarter: 2010Q3

REPORT INFORMATION
  Report Type: 
  Country: None (occurrence: None)
  Receive Date: 20100914
  Receipt Date: 20090203
  Transmission Date: 20110219
  Serious: No
  Sender: FDA-Public Use
  Company Number: US-WYE-H08072209

PATIENT
  Sex: Male

DRUGS (1)
  1. ADVIL LIQUI-GELS [Suspect]
     Route: 048
     Dates: start: 20090203, end: 20090203

REACTIONS (2)
  - EYE SWELLING [None]
  - LIP SWELLING [None]
